FAERS Safety Report 14627004 (Version 14)
Quarter: 2019Q3

REPORT INFORMATION
  Report Type: Spontaneous
  Country: DE (occurrence: DE)
  Receive Date: 20180312
  Receipt Date: 20190802
  Transmission Date: 20191004
  Serious: Yes (Hospitalization, Other)
  Sender: FDA-Public Use
  Company Number: DE-BIOGEN-2018BI00538618

PATIENT
  Age: 33 Year
  Sex: Male
  Weight: 91 kg

DRUGS (1)
  1. ZINBRYTA [Suspect]
     Active Substance: DACLIZUMAB
     Indication: RELAPSING-REMITTING MULTIPLE SCLEROSIS
     Route: 050
     Dates: start: 201612, end: 20171120

REACTIONS (19)
  - Diarrhoea [Unknown]
  - Dysarthria [Unknown]
  - Brain injury [Unknown]
  - Vertebral foraminal stenosis [Unknown]
  - Meningitis [Unknown]
  - Alanine aminotransferase increased [Recovered/Resolved]
  - Encephalitis [Not Recovered/Not Resolved]
  - Fatigue [Unknown]
  - Suicidal ideation [Unknown]
  - Mood swings [Unknown]
  - Amnesia [Unknown]
  - Aggression [Unknown]
  - Dyspnoea [Recovered/Resolved]
  - Chest discomfort [Recovered/Resolved]
  - Aspartate aminotransferase increased [Recovered/Resolved]
  - Overdose [Recovered/Resolved]
  - Depression [Unknown]
  - Weight decreased [Unknown]
  - Gamma-glutamyltransferase increased [Recovered/Resolved]

NARRATIVE: CASE EVENT DATE: 2017
